FAERS Safety Report 6180371-9 (Version None)
Quarter: 2009Q2

REPORT INFORMATION
  Report Type: 
  Country: None (occurrence: None)
  Receive Date: 20090506
  Receipt Date: 20090424
  Transmission Date: 20091009
  Serious: Yes (Death, Hospitalization)
  Sender: FDA-Public Use
  Company Number: UA-PFIZER INC-2008048007

PATIENT

DRUGS (14)
  1. BLINDED *PLACEBO [Suspect]
     Indication: COLORECTAL CANCER
     Dosage: 37.5 MG, 1X/DAY
     Route: 048
     Dates: start: 20071129, end: 20080319
  2. BLINDED SUNITINIB MALATE [Suspect]
     Indication: COLORECTAL CANCER
     Dosage: 37.5 MG, 1X/DAY
     Route: 048
     Dates: start: 20071129, end: 20080319
  3. BLINDED *PLACEBO [Suspect]
     Dosage: 25 MG, 1X/DAY
     Route: 048
     Dates: start: 20080423, end: 20080520
  4. BLINDED SUNITINIB MALATE [Suspect]
     Dosage: 25 MG, 1X/DAY
     Route: 048
     Dates: start: 20080423, end: 20080520
  5. IRINOTECAN HYDROCHLORIDE [Suspect]
     Indication: COLORECTAL CANCER
     Dosage: 315 MG; 1 EVERY 2 WEEKS
     Route: 042
     Dates: start: 20071129, end: 20080306
  6. IRINOTECAN HYDROCHLORIDE [Suspect]
     Dosage: 248 MG, 1 EVERY 2 WEEKS
     Route: 042
     Dates: start: 20080321, end: 20080423
  7. FLUOROURACIL [Suspect]
     Indication: COLORECTAL CANCER
     Dosage: 700 MG LOADING: 1 EVERY 2 WEEKS
     Route: 042
     Dates: start: 20071129, end: 20080306
  8. FLUOROURACIL [Suspect]
     Dosage: 4200 MG INFUSION: 1 EVERY 2 WEEKS
     Route: 042
     Dates: start: 20071129, end: 20080308
  9. FLUOROURACIL [Suspect]
     Dosage: 550 MG LOADING 1 EVERY 2 WEEKS
     Route: 042
     Dates: start: 20080321, end: 20080423
  10. FLUOROURACIL [Suspect]
     Dosage: 3302 MG, INFUSION 1 EVERY 2 WEEKS
     Route: 042
     Dates: start: 20080321, end: 20080425
  11. LEUCOVORIN CALCIUM [Suspect]
     Indication: COLORECTAL CANCER
     Dosage: 700 MG, UNK
     Route: 042
     Dates: start: 20071129, end: 20080423
  12. ESSENTIALE [Concomitant]
     Indication: HEPATITIS B
     Dosage: 2
     Dates: start: 20080415
  13. VITAMIN B1 TAB [Concomitant]
     Indication: HEPATITIS B
     Dates: start: 20080415
  14. VITAMIN B6 [Concomitant]
     Indication: HEPATITIS B
     Dates: start: 20080415

REACTIONS (3)
  - COLORECTAL CANCER [None]
  - DISEASE PROGRESSION [None]
  - TUMOUR LYSIS SYNDROME [None]
